FAERS Safety Report 8481225-5 (Version None)
Quarter: 2012Q2

REPORT INFORMATION
  Report Type: 
  Country: None (occurrence: None)
  Receive Date: 20120626
  Receipt Date: 20120626
  Transmission Date: 20120825
  Serious: Yes (Hospitalization)
  Sender: FDA-Public Use
  Company Number: None

PATIENT
  Age: 63 Year
  Sex: Male
  Weight: 92.5 kg

DRUGS (1)
  1. SAXAGLIPTIN [Suspect]
     Indication: PANCREATITIS
     Dates: start: 20100921, end: 20111007

REACTIONS (4)
  - PANCREATITIS [None]
  - ABSCESS [None]
  - CONSTIPATION [None]
  - DUODENAL ULCER PERFORATION [None]
